FAERS Safety Report 17906193 (Version 1)
Quarter: 2020Q2

REPORT INFORMATION
  Report Type: Spontaneous
  Country: US (occurrence: US)
  Receive Date: 20200616
  Receipt Date: 20200616
  Transmission Date: 20200714
  Serious: No
  Sender: FDA-Public Use
  Company Number: US-ROCHE-2496600

PATIENT
  Sex: Female
  Weight: 81.72 kg

DRUGS (1)
  1. ACTEMRA [Suspect]
     Active Substance: TOCILIZUMAB
     Indication: TEMPORAL ARTERITIS
     Route: 058

REACTIONS (4)
  - Product dose omission [Unknown]
  - Headache [Recovered/Resolved]
  - Needle issue [Unknown]
  - Panic attack [Unknown]
